FAERS Safety Report 25675284 (Version 1)
Quarter: 2025Q3

REPORT INFORMATION
  Report Type: Spontaneous
  Country: US (occurrence: None)
  Receive Date: 20250812
  Receipt Date: 20250812
  Transmission Date: 20251020
  Serious: Yes (Other)
  Sender: FDA-CTU
  Company Number: None

PATIENT
  Age: 73 Year
  Sex: Female

DRUGS (1)
  1. IBRANCE [Suspect]
     Active Substance: PALBOCICLIB
     Indication: Breast cancer female
     Route: 048

REACTIONS (7)
  - Fall [None]
  - Ankle fracture [None]
  - Cough [None]
  - Neuropathy peripheral [None]
  - Asthenia [None]
  - Neck pain [None]
  - Dyspnoea [None]
